FAERS Safety Report 4866204-9 (Version None)
Quarter: 2005Q4

REPORT INFORMATION
  Report Type: 
  Country: None (occurrence: None)
  Receive Date: 20051227
  Receipt Date: 20051220
  Transmission Date: 20060501
  Serious: Yes (Other)
  Sender: FDA-Public Use
  Company Number: CH-JNJFOC-20051204556

PATIENT
  Sex: Female

DRUGS (2)
  1. REMICADE [Suspect]
     Dosage: STOP DATE SPRING 2005
     Route: 042
  2. REMICADE [Suspect]
     Route: 042

REACTIONS (8)
  - ARTHRALGIA [None]
  - ASTHENIA [None]
  - BLOOD IMMUNOGLOBULIN G INCREASED [None]
  - CUTANEOUS VASCULITIS [None]
  - DIARRHOEA [None]
  - LEUKOPENIA [None]
  - LUPUS-LIKE SYNDROME [None]
  - THERAPEUTIC RESPONSE DECREASED [None]
